FAERS Safety Report 9265197 (Version 1)
Quarter: 2013Q2

REPORT INFORMATION
  Report Type: Spontaneous
  Country: NZ (occurrence: NZ)
  Receive Date: 20130501
  Receipt Date: 20130501
  Transmission Date: 20140414
  Serious: Yes (Other)
  Sender: FDA-Public Use
  Company Number: NZ-PFIZER INC-2013128836

PATIENT
  Sex: 0

DRUGS (1)
  1. AVIGRA [Suspect]
     Dosage: UNK

REACTIONS (1)
  - Anal haemorrhage [Unknown]
